FAERS Safety Report 21495276 (Version 1)
Quarter: 2022Q4

REPORT INFORMATION
  Report Type: Spontaneous
  Country: DE (occurrence: DE)
  Receive Date: 20221022
  Receipt Date: 20221022
  Transmission Date: 20230113
  Serious: Yes (Other)
  Sender: FDA-Public Use
  Company Number: DE-BAYER-2022A147460

PATIENT
  Sex: Female

DRUGS (5)
  1. XARELTO [Suspect]
     Active Substance: RIVAROXABAN
     Indication: Product used for unknown indication
     Route: 048
  2. EXEMESTANE [Concomitant]
     Active Substance: EXEMESTANE
  3. METOPROLOL [Concomitant]
     Active Substance: METOPROLOL
  4. DIGITOXIN [Concomitant]
     Active Substance: DIGITOXIN
  5. TORSEMIDE [Concomitant]
     Active Substance: TORSEMIDE

REACTIONS (1)
  - Breast cancer female [Unknown]
